FAERS Safety Report 6137407-0 (Version None)
Quarter: 2009Q1

REPORT INFORMATION
  Report Type: 
  Country: None (occurrence: None)
  Receive Date: 20090326
  Receipt Date: 20090312
  Transmission Date: 20090719
  Serious: Yes (Other)
  Sender: FDA-Public Use
  Company Number: 09-000406

PATIENT
  Age: 43 Year
  Sex: Female

DRUGS (1)
  1. TILIA FE (ETHINYL ESTRADIOL, NORETHINDRONE ACETATE) TABLET, 20/30/35 - [Suspect]
     Dosage: 20/30/35-1000 MGG, QD, ORAL
     Route: 048
     Dates: start: 20080101, end: 20080201

REACTIONS (4)
  - DRUG TOXICITY [None]
  - GASTROOESOPHAGEAL REFLUX DISEASE [None]
  - HYPERSENSITIVITY [None]
  - NO THERAPEUTIC RESPONSE [None]
